FAERS Safety Report 7229150-1 (Version None)
Quarter: 2011Q1

REPORT INFORMATION
  Report Type: 
  Country: None (occurrence: None)
  Receive Date: 20110117
  Receipt Date: 20110106
  Transmission Date: 20110831
  Serious: Yes (Death)
  Sender: FDA-Public Use
  Company Number: US-PFIZER INC-2011000649

PATIENT
  Age: 20 Year
  Sex: Male

DRUGS (6)
  1. SERTRALINE HYDROCHLORIDE [Suspect]
     Dosage: UNK
     Route: 048
  2. DIPHENHYDRAMINE [Suspect]
     Dosage: UNK
     Route: 048
  3. DOXYLAMINE [Suspect]
     Dosage: UNK
     Route: 048
  4. HALOPERIDOL [Suspect]
     Dosage: UNK
     Route: 048
  5. CARISOPRODOL [Suspect]
     Dosage: UNK
     Route: 048
  6. LAMOTRIGINE [Suspect]
     Dosage: UNK
     Route: 048

REACTIONS (5)
  - COMPLETED SUICIDE [None]
  - RESPIRATORY ARREST [None]
  - TOXICITY TO VARIOUS AGENTS [None]
  - CARDIAC ARREST [None]
  - INTENTIONAL DRUG MISUSE [None]
